FAERS Safety Report 22245478 (Version 1)
Quarter: 2023Q2

REPORT INFORMATION
  Report Type: Report from Study
  Country: NO (occurrence: NO)
  Receive Date: 20230424
  Receipt Date: 20230424
  Transmission Date: 20230721
  Serious: Yes (Death, Hospitalization)
  Sender: FDA-Public Use
  Company Number: NO-002147023-NVSC2022NO292410

PATIENT
  Age: 41 Year
  Sex: Male

DRUGS (7)
  1. PIQRAY [Suspect]
     Active Substance: ALPELISIB
     Indication: Neoplasm malignant
     Dosage: 300 MG
     Route: 065
     Dates: start: 20221017, end: 20221031
  2. FENTANYL [Concomitant]
     Active Substance: FENTANYL
     Indication: Pain
     Dosage: 125 UG
     Route: 065
     Dates: start: 202210
  3. SODIUM PICOSULFATE [Concomitant]
     Active Substance: SODIUM PICOSULFATE
     Indication: Adverse drug reaction
     Dosage: 5-10 OTHER (DROPS)
     Route: 065
     Dates: start: 202205
  4. MORPHINE [Concomitant]
     Active Substance: MORPHINE
     Indication: Cancer pain
     Dosage: 60 MG
     Route: 065
     Dates: start: 202210
  5. ACETAMINOPHEN [Concomitant]
     Active Substance: ACETAMINOPHEN
     Indication: Cancer pain
     Dosage: 1 G
     Route: 065
     Dates: start: 2022
  6. LACTULOSE [Concomitant]
     Active Substance: LACTULOSE
     Indication: Adverse drug reaction
     Dosage: 15 ML
     Route: 065
     Dates: start: 2022
  7. MOVICOL [Concomitant]
     Active Substance: POLYETHYLENE GLYCOL 3350\POTASSIUM CHLORIDE\SODIUM BICARBONATE\SODIUM CHLORIDE
     Indication: Adverse drug reaction
     Dosage: 13.8 G
     Route: 065
     Dates: start: 2022

REACTIONS (2)
  - Dyspepsia [Not Recovered/Not Resolved]
  - Haematemesis [Fatal]

NARRATIVE: CASE EVENT DATE: 20221031
